FAERS Safety Report 10562489 (Version 1)
Quarter: 2014Q4

REPORT INFORMATION
  Report Type: Spontaneous
  Country: US (occurrence: None)
  Receive Date: 20141103
  Receipt Date: 20141103
  Transmission Date: 20150529
  Serious: Yes (Hospitalization)
  Sender: FDA-Public Use
  Company Number: None

PATIENT
  Age: 44 Year
  Sex: Female
  Weight: 132.1 kg

DRUGS (3)
  1. LAMOTRIGINE. [Suspect]
     Active Substance: LAMOTRIGINE
     Indication: MANIA
     Dosage: 100 MG, EVERY DAY, PO
     Route: 048
     Dates: start: 20131209, end: 20140808
  2. LAMOTRIGINE. [Suspect]
     Active Substance: LAMOTRIGINE
     Indication: BIPOLAR I DISORDER
     Dosage: 100 MG, EVERY DAY, PO
     Route: 048
     Dates: start: 20131209, end: 20140808
  3. LAMOTRIGINE. [Suspect]
     Active Substance: LAMOTRIGINE
     Indication: BIPOLAR DISORDER
     Dosage: 100 MG, EVERY DAY, PO
     Route: 048
     Dates: start: 20131209, end: 20140808

REACTIONS (3)
  - Headache [None]
  - Meningitis aseptic [None]
  - Confusional state [None]

NARRATIVE: CASE EVENT DATE: 20140709
